FAERS Safety Report 18397112 (Version 1)
Quarter: 2020Q4

REPORT INFORMATION
  Report Type: Spontaneous
  Country: US (occurrence: US)
  Receive Date: 20201016
  Receipt Date: 20201016
  Transmission Date: 20210114
  Serious: Yes (Hospitalization)
  Sender: FDA-Public Use
  Company Number: None

PATIENT
  Age: 50 Year
  Sex: Female
  Weight: 75.3 kg

DRUGS (17)
  1. MORPHINE SUFLATE (CONCENTRATE) [Concomitant]
  2. BRAFTOVI [Suspect]
     Active Substance: ENCORAFENIB
     Indication: MALIGNANT MELANOMA
     Route: 048
     Dates: start: 20200507
  3. CALCITONIN [Concomitant]
     Active Substance: CALCITONIN
  4. LORATADINE. [Concomitant]
     Active Substance: LORATADINE
  5. BACLOFEN. [Concomitant]
     Active Substance: BACLOFEN
  6. CITALOPRAM [Concomitant]
     Active Substance: CITALOPRAM HYDROBROMIDE
  7. MORPHINE SULFATE. [Concomitant]
     Active Substance: MORPHINE SULFATE
  8. PROMETHAZINE  GEL [Concomitant]
  9. POTASSIUM CL [Concomitant]
     Active Substance: POTASSIUM CHLORIDE
  10. SUCRALFATE. [Concomitant]
     Active Substance: SUCRALFATE
  11. ACETAMINOPHEN EXTRA STRENGTH [Concomitant]
     Active Substance: ACETAMINOPHEN
  12. PROMETHAZINE HCL [Concomitant]
     Active Substance: PROMETHAZINE HYDROCHLORIDE
  13. HYDROXYZINE PAMOATE. [Concomitant]
     Active Substance: HYDROXYZINE PAMOATE
  14. DRONABINOL. [Concomitant]
     Active Substance: DRONABINOL
  15. HYDROCORTISONE. [Concomitant]
     Active Substance: HYDROCORTISONE
  16. MORPHINE SULFATE ER [Concomitant]
     Active Substance: MORPHINE SULFATE
  17. ZOFRAN [Concomitant]
     Active Substance: ONDANSETRON HYDROCHLORIDE

REACTIONS (4)
  - Candida infection [None]
  - Metastases to central nervous system [None]
  - Asthenia [None]
  - Dysphagia [None]

NARRATIVE: CASE EVENT DATE: 20201016
